FAERS Safety Report 22653157 (Version 1)
Quarter: 2023Q2

REPORT INFORMATION
  Report Type: Spontaneous
  Country: FR (occurrence: FR)
  Receive Date: 20230629
  Receipt Date: 20230629
  Transmission Date: 20230721
  Serious: Yes (Other)
  Sender: FDA-Public Use
  Company Number: None

PATIENT
  Sex: Female

DRUGS (3)
  1. ZOLPIDEM [Suspect]
     Active Substance: ZOLPIDEM TARTRATE
     Indication: Wrong product administered
     Route: 065
     Dates: start: 20230330, end: 20230330
  2. OXAZEPAM [Suspect]
     Active Substance: OXAZEPAM
     Indication: Wrong product administered
     Route: 065
     Dates: start: 20230330, end: 20230330
  3. LORMETAZEPAM [Suspect]
     Active Substance: LORMETAZEPAM
     Indication: Wrong product administered
     Route: 065
     Dates: start: 20230330, end: 20230330

REACTIONS (3)
  - Oxygen saturation decreased [Recovered/Resolved]
  - Somnolence [Recovered/Resolved]
  - Wrong patient received product [Recovered/Resolved]

NARRATIVE: CASE EVENT DATE: 20230330
